FAERS Safety Report 7237650-3 (Version None)
Quarter: 2011Q1

REPORT INFORMATION
  Report Type: 
  Country: None (occurrence: None)
  Receive Date: 20110121
  Receipt Date: 20110113
  Transmission Date: 20110831
  Serious: Yes (Other)
  Sender: FDA-Public Use
  Company Number: PHFR2010GB05954

PATIENT
  Sex: Male

DRUGS (5)
  1. MYCOPHENOLATE MOFETIL [Suspect]
  2. ANTIPSYCHOTICS [Concomitant]
  3. AMISULPRIDE [Concomitant]
     Route: 048
  4. CLOZAPINE [Concomitant]
     Indication: SCHIZOPHRENIA
     Route: 065
  5. TACROLIMUS [Concomitant]

REACTIONS (3)
  - ABNORMAL BEHAVIOUR [None]
  - EXTRAPYRAMIDAL DISORDER [None]
  - HALLUCINATION, AUDITORY [None]
